FAERS Safety Report 24066232 (Version 1)
Quarter: 2024Q3

REPORT INFORMATION
  Report Type: Spontaneous
  Country: US (occurrence: None)
  Receive Date: 20240709
  Receipt Date: 20240709
  Transmission Date: 20241016
  Serious: Yes (Hospitalization)
  Sender: Public
  Company Number: None

PATIENT
  Sex: Male

DRUGS (1)
  1. LENALIDOMIDE [Suspect]
     Active Substance: LENALIDOMIDE
     Indication: Plasma cell myeloma
     Dosage: 25MG 14DAYS ON 7 OFF ORAL?
     Route: 048
     Dates: start: 202203

REACTIONS (4)
  - Pneumonia [None]
  - Pneumothorax [None]
  - Loss of consciousness [None]
  - Therapy cessation [None]
